FAERS Safety Report 5447670-7 (Version None)
Quarter: 2007Q3

REPORT INFORMATION
  Report Type: 
  Country: None (occurrence: None)
  Receive Date: 20070906
  Receipt Date: 20070906
  Transmission Date: 20080115
  Serious: Yes (Hospitalization)
  Sender: FDA-Public Use
  Company Number: None

PATIENT
  Sex: Female
  Weight: 79.3795 kg

DRUGS (2)
  1. MIRALAX [Suspect]
     Indication: ABDOMINAL ADHESIONS
     Dosage: 17GRAMS/8OZLIQ. 3XDAY DRINK
     Dates: start: 20030708, end: 20040501
  2. MIRALAX [Suspect]
     Indication: GASTROINTESTINAL DISORDER
     Dosage: 17GRAMS/8OZLIQ. 3XDAY DRINK
     Dates: start: 20030708, end: 20040501

REACTIONS (4)
  - DRUG INEFFECTIVE [None]
  - OEDEMA PERIPHERAL [None]
  - SKIN WRINKLING [None]
  - WEIGHT INCREASED [None]
